FAERS Safety Report 12223265 (Version 1)
Quarter: 2016Q1

REPORT INFORMATION
  Report Type: Spontaneous
  Country: US (occurrence: US)
  Receive Date: 20160330
  Receipt Date: 20160330
  Transmission Date: 20160526
  Serious: No
  Sender: FDA-Public Use
  Company Number: US-ELI_LILLY_AND_COMPANY-US201603009342

PATIENT
  Sex: Female

DRUGS (2)
  1. METFORMIN [Concomitant]
     Active Substance: METFORMIN HYDROCHLORIDE
  2. TRULICITY [Suspect]
     Active Substance: DULAGLUTIDE
     Indication: TYPE 2 DIABETES MELLITUS
     Dosage: 0.75 MG, WEEKLY (1/W)
     Route: 065

REACTIONS (9)
  - Anxiety [Unknown]
  - Feeling abnormal [Unknown]
  - Claustrophobia [Unknown]
  - Blood glucose increased [Unknown]
  - Weight increased [Unknown]
  - Food craving [Unknown]
  - Increased appetite [Unknown]
  - Irritability [Unknown]
  - Constipation [Unknown]
